FAERS Safety Report 20011510 (Version 4)
Quarter: 2021Q4

REPORT INFORMATION
  Report Type: Spontaneous
  Country: DE (occurrence: DE)
  Receive Date: 20211029
  Receipt Date: 20211215
  Transmission Date: 20220304
  Serious: Yes (Hospitalization)
  Sender: FDA-Public Use
  Company Number: DE-NOVARTISPH-NVSC2021DE241663

PATIENT
  Age: 52 Year
  Sex: Male

DRUGS (29)
  1. CARBOPLATIN [Suspect]
     Active Substance: CARBOPLATIN
     Indication: Non-small cell lung cancer
     Dosage: 1400 MG
     Route: 041
     Dates: start: 20210726, end: 20210817
  2. CARBOPLATIN [Suspect]
     Active Substance: CARBOPLATIN
     Dosage: 700 MG (2 CYCLE)
     Route: 042
     Dates: start: 20210826
  3. IPILIMUMAB [Suspect]
     Active Substance: IPILIMUMAB
     Indication: Non-small cell lung cancer
     Dosage: 140 MG, Q3W
     Route: 042
     Dates: start: 20210726, end: 20210928
  4. IPILIMUMAB [Suspect]
     Active Substance: IPILIMUMAB
     Dosage: 420 MG
     Route: 041
     Dates: start: 20210726
  5. IPILIMUMAB [Suspect]
     Active Substance: IPILIMUMAB
     Dosage: 140 MG
     Route: 042
     Dates: start: 20210816
  6. IPILIMUMAB [Suspect]
     Active Substance: IPILIMUMAB
     Dosage: 140 MG
     Route: 042
     Dates: start: 20210906
  7. IPILIMUMAB [Suspect]
     Active Substance: IPILIMUMAB
     Dosage: 140 MG
     Route: 042
     Dates: start: 20211110
  8. NIVOLUMAB [Suspect]
     Active Substance: NIVOLUMAB
     Indication: Non-small cell lung cancer
     Dosage: 360 MG, Q3W
     Route: 042
     Dates: start: 20210726, end: 20210928
  9. NIVOLUMAB [Suspect]
     Active Substance: NIVOLUMAB
     Dosage: 1080 MG, QD
     Route: 041
     Dates: start: 20210726
  10. NIVOLUMAB [Suspect]
     Active Substance: NIVOLUMAB
     Dosage: 360 MG
     Route: 042
     Dates: start: 20210816
  11. NIVOLUMAB [Suspect]
     Active Substance: NIVOLUMAB
     Dosage: 360 MG
     Route: 042
     Dates: start: 20210906
  12. NIVOLUMAB [Suspect]
     Active Substance: NIVOLUMAB
     Dosage: 360 MG
     Route: 065
     Dates: start: 20211019
  13. NIVOLUMAB [Suspect]
     Active Substance: NIVOLUMAB
     Dosage: 360 MG
     Route: 042
     Dates: start: 20211110
  14. PACLITAXEL [Suspect]
     Active Substance: PACLITAXEL
     Indication: Non-small cell lung cancer
     Dosage: 400 MG (2 CYCLE)
     Route: 041
     Dates: start: 20210726, end: 20210817
  15. PACLITAXEL [Suspect]
     Active Substance: PACLITAXEL
     Dosage: 1400 MG
     Route: 041
     Dates: start: 20210726, end: 20210817
  16. LEVOTHYROXINE SODIUM [Concomitant]
     Active Substance: LEVOTHYROXINE SODIUM
     Indication: Product used for unknown indication
     Dosage: UNK
     Route: 065
     Dates: start: 20210622
  17. METOPROLOL SUCCINATE [Concomitant]
     Active Substance: METOPROLOL SUCCINATE
     Indication: Product used for unknown indication
     Dosage: UNK
     Route: 065
  18. METHYLPREDNISOLONE ACEPONATE [Concomitant]
     Active Substance: METHYLPREDNISOLONE ACEPONATE
     Indication: Product used for unknown indication
     Dosage: UNK
     Route: 065
     Dates: start: 20210817
  19. PREDNISOLONE [Concomitant]
     Active Substance: PREDNISOLONE
     Indication: Product used for unknown indication
     Dosage: UNK
     Route: 065
     Dates: start: 20210917, end: 20210917
  20. PREDNISOLONE [Concomitant]
     Active Substance: PREDNISOLONE
     Dosage: UNK
     Route: 065
     Dates: start: 20210923, end: 20211006
  21. PREDNISOLONE [Concomitant]
     Active Substance: PREDNISOLONE
     Dosage: UNK
     Route: 065
     Dates: start: 20211007
  22. LERCANIDIPINE [Concomitant]
     Active Substance: LERCANIDIPINE
     Indication: Product used for unknown indication
     Dosage: UNK
     Route: 065
     Dates: start: 20210622
  23. PANTOZOL [Concomitant]
     Active Substance: PANTOPRAZOLE SODIUM
     Indication: Prophylaxis
     Dosage: UNK
     Route: 065
     Dates: start: 20210621
  24. ATORVASTATIN [Concomitant]
     Active Substance: ATORVASTATIN
     Indication: Product used for unknown indication
     Dosage: UNK
     Route: 065
  25. ASPIRIN [Concomitant]
     Active Substance: ASPIRIN
     Indication: Product used for unknown indication
     Dosage: UNK
     Route: 065
  26. ASPIRIN [Concomitant]
     Active Substance: ASPIRIN
     Dosage: UNK
     Route: 065
  27. PREDNISOLONE ACETATE [Concomitant]
     Active Substance: PREDNISOLONE ACETATE
     Indication: Product used for unknown indication
     Dosage: UNK
     Route: 065
     Dates: start: 20210623
  28. METAMIZOLE [Concomitant]
     Active Substance: METAMIZOLE
     Indication: Product used for unknown indication
     Dosage: UNK (ON DEMAND) UP TO MAXIMAL 4X2 TABLETS
     Route: 065
     Dates: start: 20210817
  29. HYDROCHLOROTHIAZIDE\OLMESARTAN MEDOXOMIL [Concomitant]
     Active Substance: HYDROCHLOROTHIAZIDE\OLMESARTAN MEDOXOMIL
     Indication: Product used for unknown indication
     Dosage: UNK
     Route: 065

REACTIONS (5)
  - Radiation pneumonitis [Recovering/Resolving]
  - Pneumonitis [Recovering/Resolving]
  - Oedema peripheral [Recovering/Resolving]
  - Off label use [Unknown]
  - Prescribed underdose [Unknown]

NARRATIVE: CASE EVENT DATE: 20210917
